FAERS Safety Report 18763508 (Version 1)
Quarter: 2021Q1

REPORT INFORMATION
  Report Type: Spontaneous
  Country: HN (occurrence: HN)
  Receive Date: 20210120
  Receipt Date: 20210120
  Transmission Date: 20210419
  Serious: Yes (Other)
  Sender: FDA-Public Use
  Company Number: HN-PFIZER INC-2021030008

PATIENT
  Age: 79 Year
  Sex: Male

DRUGS (1)
  1. LIPITOR [Suspect]
     Active Substance: ATORVASTATIN CALCIUM
     Dosage: 20 MG, DAILY
     Route: 048
     Dates: start: 2013

REACTIONS (5)
  - Illness [Unknown]
  - Mental disorder [Unknown]
  - Parkinson^s disease [Unknown]
  - Aphasia [Unknown]
  - Senile dementia [Unknown]
